FAERS Safety Report 13011853 (Version 1)
Quarter: 2016Q4

REPORT INFORMATION
  Report Type: Other
  Country: GB (occurrence: GB)
  Receive Date: 20161209
  Receipt Date: 20161209
  Transmission Date: 20170207
  Serious: No
  Sender: FDA-Public Use
  Company Number: GB-NOVEL LABORATORIES, INC-2016-05143

PATIENT
  Sex: Female

DRUGS (5)
  1. MEPIVACAINE [Suspect]
     Active Substance: MEPIVACAINE\MEPIVACAINE HYDROCHLORIDE
     Indication: ABORTION INDUCED
     Route: 065
  2. MISOPROSTOL. [Suspect]
     Active Substance: MISOPROSTOL
     Indication: ABORTION INDUCED
     Dosage: 2?200 MG MISOPROSTOL TABLETS
  3. DICLOFENAC [Suspect]
     Active Substance: DICLOFENAC
     Indication: ABORTION INDUCED
     Route: 054
  4. DICLOFENAC [Suspect]
     Active Substance: DICLOFENAC
     Indication: ABORTION INDUCED
     Route: 054
  5. INSTILLAGEL [Suspect]
     Active Substance: CHLORHEXIDINE GLUCONATE\LIDOCAINE HYDROCHLORIDE
     Indication: ABORTION INDUCED
     Route: 065

REACTIONS (2)
  - Self-medication [Unknown]
  - Hypersensitivity [Recovered/Resolved]
